FAERS Safety Report 23940443 (Version 1)
Quarter: 2024Q2

REPORT INFORMATION
  Report Type: Spontaneous
  Country: IN (occurrence: IN)
  Receive Date: 20240605
  Receipt Date: 20240605
  Transmission Date: 20240716
  Serious: Yes (Other)
  Sender: FDA-Public Use
  Company Number: IN-JNJFOC-20240602865

PATIENT
  Age: 44 Year
  Sex: Female

DRUGS (5)
  1. SIRTURO [Suspect]
     Active Substance: BEDAQUILINE FUMARATE
     Indication: Pulmonary tuberculosis
     Route: 048
  2. MOXIFLOXACIN [Suspect]
     Active Substance: MOXIFLOXACIN
     Indication: Pulmonary tuberculosis
     Route: 065
  3. LINEZOLID [Suspect]
     Active Substance: LINEZOLID
     Indication: Pulmonary tuberculosis
     Route: 065
  4. CLOFAZIMINE [Suspect]
     Active Substance: CLOFAZIMINE
     Indication: Pulmonary tuberculosis
     Route: 065
  5. PYRIDOXINE [Suspect]
     Active Substance: PYRIDOXINE
     Indication: Pulmonary tuberculosis
     Route: 065

REACTIONS (2)
  - Torsade de pointes [Unknown]
  - Hypokalaemia [Unknown]
